FAERS Safety Report 16846130 (Version 1)
Quarter: 2019Q3

REPORT INFORMATION
  Report Type: Spontaneous
  Country: US (occurrence: US)
  Receive Date: 20190924
  Receipt Date: 20190924
  Transmission Date: 20191005
  Serious: Yes (Other)
  Sender: FDA-Public Use
  Company Number: US-TEVA-2019-US-1112208

PATIENT
  Age: 70 Year
  Sex: Male

DRUGS (4)
  1. ZOLPIDEM [Suspect]
     Active Substance: ZOLPIDEM TARTRATE
     Indication: PAIN
  2. CARBAMAZEPINE. [Concomitant]
     Active Substance: CARBAMAZEPINE
     Indication: SEIZURE
     Route: 065
  3. ZOLPIDEM [Suspect]
     Active Substance: ZOLPIDEM TARTRATE
     Indication: INTENTIONAL OVERDOSE
     Dosage: INGESTED 30 PILLS OVER 3 DAYS, NUMBER OF SEPARATE DOSAGES -1
     Route: 048
  4. ZOLPIDEM [Suspect]
     Active Substance: ZOLPIDEM TARTRATE
     Indication: INTENTIONAL PRODUCT MISUSE

REACTIONS (8)
  - Intentional product misuse [Unknown]
  - Cholelithiasis [Recovered/Resolved]
  - Coeliac disease [Recovered/Resolved]
  - Intentional overdose [Unknown]
  - Mesenteric arteriosclerosis [Recovered/Resolved]
  - Arteriosclerosis [Recovered/Resolved]
  - Inappropriate antidiuretic hormone secretion [Recovered/Resolved]
  - Hyponatraemia [Unknown]
